FAERS Safety Report 26110997 (Version 1)
Quarter: 2025Q4

REPORT INFORMATION
  Report Type: Spontaneous
  Country: CN (occurrence: CN)
  Receive Date: 20251202
  Receipt Date: 20251202
  Transmission Date: 20260118
  Serious: Yes (Hospitalization, Other)
  Sender: GLAND PHARMA LTD
  Company Number: CN-GLANDPHARMA-CN-2025GLNLIT02093

PATIENT
  Age: 70 Year
  Sex: Male

DRUGS (17)
  1. OXALIPLATIN [Suspect]
     Active Substance: OXALIPLATIN
     Indication: Colorectal cancer
     Dosage: 8 CYLCES
     Route: 042
     Dates: start: 20211222
  2. OXALIPLATIN [Suspect]
     Active Substance: OXALIPLATIN
     Dosage: 9TH CYCLE
     Route: 042
     Dates: start: 20220603
  3. FLUOROURACIL [Suspect]
     Active Substance: FLUOROURACIL
     Indication: Colorectal cancer
     Dosage: 8 CYCLES
     Route: 042
     Dates: start: 20211222
  4. FLUOROURACIL [Suspect]
     Active Substance: FLUOROURACIL
     Dosage: 9TH CYCLE
     Route: 042
     Dates: start: 20220603
  5. FLUOROURACIL [Suspect]
     Active Substance: FLUOROURACIL
     Dosage: 9TH CYCLE
     Route: 042
     Dates: start: 20220604
  6. LEUCOVORIN CALCIUM [Suspect]
     Active Substance: LEUCOVORIN CALCIUM
     Indication: Colorectal cancer
     Dosage: 8 CYCLES
     Route: 042
     Dates: start: 20211222
  7. LEUCOVORIN CALCIUM [Suspect]
     Active Substance: LEUCOVORIN CALCIUM
     Dosage: 9TH CYCLE
     Route: 042
     Dates: start: 20220603
  8. OMEPRAZOLE [Suspect]
     Active Substance: OMEPRAZOLE
     Indication: Product used for unknown indication
     Route: 042
     Dates: start: 20220603
  9. OMEPRAZOLE [Suspect]
     Active Substance: OMEPRAZOLE
     Route: 042
     Dates: start: 20220604
  10. METHYLPREDNISOLONE [Concomitant]
     Active Substance: METHYLPREDNISOLONE
     Indication: Product used for unknown indication
     Route: 042
     Dates: start: 20220603
  11. VITAMIN C [Concomitant]
     Active Substance: ASCORBIC ACID
     Indication: Product used for unknown indication
     Route: 042
     Dates: start: 20220603
  12. VITAMIN C [Concomitant]
     Active Substance: ASCORBIC ACID
     Route: 042
     Dates: start: 20220604
  13. VITAMIN B6 [Concomitant]
     Active Substance: PYRIDOXINE HYDROCHLORIDE
     Indication: Product used for unknown indication
     Route: 042
     Dates: start: 20220603
  14. VITAMIN B6 [Concomitant]
     Active Substance: PYRIDOXINE HYDROCHLORIDE
     Route: 042
     Dates: start: 20220604
  15. GRANISETRON [Concomitant]
     Active Substance: GRANISETRON
     Indication: Product used for unknown indication
     Route: 042
     Dates: start: 20220603
  16. GRANISETRON [Concomitant]
     Active Substance: GRANISETRON
     Route: 042
     Dates: start: 20220604
  17. BEVACIZUMAB [Concomitant]
     Active Substance: BEVACIZUMAB
     Indication: Colorectal cancer
     Route: 042
     Dates: start: 20220604

REACTIONS (2)
  - Insulin autoimmune syndrome [Recovered/Resolved]
  - Drug interaction [Unknown]
